FAERS Safety Report 8783968 (Version 1)
Quarter: 2012Q4

REPORT INFORMATION
  Report Type: Report from Study
  Country: US (occurrence: US)
  Receive Date: 20120913
  Receipt Date: 20120913
  Transmission Date: 20130627
  Serious: No
  Sender: FDA-Public Use
  Company Number: US-VERTEX PHARMACEUTICAL INC.-AE-2012-009317

PATIENT
  Sex: Male

DRUGS (5)
  1. INCIVEK [Suspect]
     Indication: HEPATITIS C
     Route: 048
     Dates: start: 20120610
  2. RIBAVIRIN [Concomitant]
     Indication: HEPATITIS C
  3. PEGASYS [Concomitant]
     Indication: HEPATITIS C
  4. TYLENOL [Concomitant]
  5. ACID REDUCER [Concomitant]

REACTIONS (4)
  - Influenza like illness [Not Recovered/Not Resolved]
  - Pyrexia [Not Recovered/Not Resolved]
  - Headache [Not Recovered/Not Resolved]
  - Rash [Not Recovered/Not Resolved]
